FAERS Safety Report 12360544 (Version 1)
Quarter: 2016Q2

REPORT INFORMATION
  Report Type: Spontaneous
  Country: US (occurrence: US)
  Receive Date: 20160512
  Receipt Date: 20160512
  Transmission Date: 20160815
  Serious: No
  Sender: FDA-Public Use
  Company Number: US-ACTAVIS-2015-24999

PATIENT
  Age: 67 Year
  Sex: Female
  Weight: 117.91 kg

DRUGS (2)
  1. CEFUROXIME. [Concomitant]
     Active Substance: CEFUROXIME
     Indication: PHARYNGITIS
     Route: 065
  2. MICONAZOLE NITRATE-MICONAZOLE (AMALLC) [Suspect]
     Active Substance: MICONAZOLE NITRATE
     Indication: FUNGAL INFECTION
     Dosage: USE FULL COURSE 3 DAY
     Route: 067
     Dates: start: 20151111, end: 20151114

REACTIONS (1)
  - Drug ineffective [Unknown]

NARRATIVE: CASE EVENT DATE: 20151111
